FAERS Safety Report 7718703-X (Version None)
Quarter: 2011Q3

REPORT INFORMATION
  Report Type: 
  Country: None (occurrence: None)
  Receive Date: 20110830
  Receipt Date: 20110818
  Transmission Date: 20111222
  Serious: Yes (Other)
  Sender: FDA-Public Use
  Company Number: US-ELI_LILLY_AND_COMPANY-US201108007778

PATIENT
  Sex: Female

DRUGS (2)
  1. CYMBALTA [Suspect]
     Dosage: UNK, UNKNOWN
  2. LYRICA [Concomitant]
     Dosage: UNK, UNKNOWN

REACTIONS (7)
  - GRIP STRENGTH DECREASED [None]
  - DEPRESSION [None]
  - ANAEMIA [None]
  - FOOT OPERATION [None]
  - FIBROMYALGIA [None]
  - KNEE ARTHROPLASTY [None]
  - PAIN [None]
